FAERS Safety Report 8143152-2 (Version None)
Quarter: 2012Q1

REPORT INFORMATION
  Report Type: 
  Country: None (occurrence: None)
  Receive Date: 20120217
  Receipt Date: 20120213
  Transmission Date: 20120608
  Serious: No
  Sender: FDA-Public Use
  Company Number: US-PFIZER INC-2012039128

PATIENT
  Sex: Female
  Weight: 54.4 kg

DRUGS (2)
  1. ZOLOFT [Suspect]
     Indication: NERVOUS SYSTEM DISORDER
     Dosage: UNK, 1X/DAY
     Dates: start: 20060101, end: 20060101
  2. PREMARIN [Suspect]
     Indication: HOT FLUSH
     Dosage: 1.25 MG, 1X/DAY
     Route: 048

REACTIONS (4)
  - SWOLLEN TONGUE [None]
  - EYE SWELLING [None]
  - LIP SWELLING [None]
  - HYPERSENSITIVITY [None]
